FAERS Safety Report 5804398-9 (Version None)
Quarter: 2008Q3

REPORT INFORMATION
  Report Type: 
  Country: None (occurrence: None)
  Receive Date: 20080707
  Receipt Date: 20080707
  Transmission Date: 20090109
  Serious: No
  Sender: FDA-Public Use
  Company Number: None

PATIENT
  Sex: Female

DRUGS (1)
  1. LUPRON [Suspect]
     Dosage: 3.75MG MONTHLY IM
     Route: 030

REACTIONS (4)
  - ABDOMINAL DISTENSION [None]
  - HEADACHE [None]
  - MUSCLE SPASMS [None]
  - WEIGHT INCREASED [None]
